FAERS Safety Report 13840498 (Version 1)
Quarter: 2017Q3

REPORT INFORMATION
  Report Type: Spontaneous
  Country: FR (occurrence: FR)
  Receive Date: 20170807
  Receipt Date: 20170807
  Transmission Date: 20171127
  Serious: Yes (Death, Hospitalization, Other)
  Sender: FDA-Public Use
  Company Number: FR-PFIZER INC-2017335293

PATIENT
  Age: 66 Year
  Sex: Male

DRUGS (3)
  1. CARBOPLATINE HOSPIRA [Suspect]
     Active Substance: CARBOPLATIN
     Indication: HYPOPHARYNGEAL CANCER STAGE IV
     Dosage: 800 MG, CYCLIC
     Route: 042
     Dates: start: 20170606
  2. PACLITAXEL HOSPIRA [Suspect]
     Active Substance: PACLITAXEL
     Indication: HYPOPHARYNGEAL CANCER STAGE IV
     Dosage: 300 MG, CYCLIC
     Route: 042
     Dates: start: 20170606, end: 20170626
  3. CARBOPLATIN TEVA [Suspect]
     Active Substance: CARBOPLATIN
     Indication: HYPOPHARYNGEAL CANCER STAGE IV
     Dosage: 800 MG, CYCLIC
     Dates: start: 20170626

REACTIONS (8)
  - Nervous system disorder [Unknown]
  - Pancytopenia [Fatal]
  - Respiratory arrest [Unknown]
  - Renal failure [Unknown]
  - Neutropenic colitis [Fatal]
  - Shock [Fatal]
  - Haemodynamic instability [Unknown]
  - Confusional state [Unknown]

NARRATIVE: CASE EVENT DATE: 201707
